FAERS Safety Report 6578029-7 (Version None)
Quarter: 2010Q1

REPORT INFORMATION
  Report Type: 
  Country: None (occurrence: None)
  Receive Date: 20100211
  Receipt Date: 20100202
  Transmission Date: 20100710
  Serious: Yes (Other)
  Sender: FDA-Public Use
  Company Number: BR-ABBOTT-10P-020-0624291-00

PATIENT
  Sex: Female
  Weight: 95 kg

DRUGS (3)
  1. HUMIRA [Suspect]
     Indication: RHEUMATOID ARTHRITIS
     Route: 058
     Dates: start: 20030801
  2. METHOTREXATE [Concomitant]
     Indication: PROPHYLAXIS
     Route: 048
     Dates: start: 20030101
  3. PAROXETINE HCL [Concomitant]
     Indication: FIBROMYALGIA
     Route: 048
     Dates: start: 20030101

REACTIONS (10)
  - ANAEMIA [None]
  - CHOLECYSTECTOMY [None]
  - HAEMORRHAGE [None]
  - INFLUENZA [None]
  - MENSTRUAL DISORDER [None]
  - PHARYNGITIS [None]
  - PRODUCTIVE COUGH [None]
  - THROMBOSIS [None]
  - URINARY TRACT INFECTION [None]
  - UTERINE CYST [None]
